FAERS Safety Report 7770103-2 (Version None)
Quarter: 2011Q3

REPORT INFORMATION
  Report Type: 
  Country: None (occurrence: None)
  Receive Date: 20110922
  Receipt Date: 20110918
  Transmission Date: 20111222
  Serious: Yes (Life-Threatening, Hospitalization, Other)
  Sender: FDA-Public Use
  Company Number: CZ-ABBOTT-11P-217-0855497-00

PATIENT
  Sex: Female

DRUGS (4)
  1. HUMIRA [Suspect]
     Indication: RHEUMATOID ARTHRITIS
     Route: 058
     Dates: start: 20100226
  2. LANZUL [Concomitant]
     Indication: PRODUCT USED FOR UNKNOWN INDICATION
     Dates: start: 20100806
  3. PREDNISONE [Concomitant]
     Indication: PRODUCT USED FOR UNKNOWN INDICATION
     Dates: start: 19960202
  4. RECOXA [Concomitant]
     Indication: PRODUCT USED FOR UNKNOWN INDICATION
     Dates: start: 20080505

REACTIONS (8)
  - URINARY TRACT INFECTION [None]
  - SEPSIS [None]
  - OLIGURIA [None]
  - PYREXIA [None]
  - GLOMERULONEPHRITIS ACUTE [None]
  - CONDITION AGGRAVATED [None]
  - ANURIA [None]
  - RENAL FAILURE [None]
